FAERS Safety Report 8197088-1 (Version None)
Quarter: 2012Q1

REPORT INFORMATION
  Report Type: 
  Country: None (occurrence: None)
  Receive Date: 20120309
  Receipt Date: 20120301
  Transmission Date: 20120608
  Serious: Yes (Other)
  Sender: FDA-Public Use
  Company Number: JP-ASTELLAS-2012JP001802

PATIENT
  Age: 1 Year
  Sex: Male

DRUGS (5)
  1. PROGRAF [Suspect]
     Indication: PROPHYLAXIS AGAINST GRAFT VERSUS HOST DISEASE
     Dosage: UNK
     Route: 065
  2. METHOTREXATE [Concomitant]
     Indication: PROPHYLAXIS AGAINST GRAFT VERSUS HOST DISEASE
  3. FLUDARABINE PHOSPHATE [Concomitant]
     Indication: BONE MARROW CONDITIONING REGIMEN
     Dosage: 30 MG/M2, UNKNOWN/D
     Route: 065
  4. MELPHALAN HYDROCHLORIDE [Concomitant]
     Indication: BONE MARROW CONDITIONING REGIMEN
     Dosage: 90 MG/M2, UNKNOWN/D
     Route: 065
  5. ANTI-THYMOCYTE GLOBULIN NOS [Concomitant]
     Dosage: 2.5 MG/KG, UNKNOWN/D
     Route: 065

REACTIONS (3)
  - ACUTE GRAFT VERSUS HOST DISEASE [None]
  - EPSTEIN-BARR VIRUS TEST POSITIVE [None]
  - DRUG INEFFECTIVE [None]
